FAERS Safety Report 9135685 (Version 2)
Quarter: 2013Q2

REPORT INFORMATION
  Report Type: Spontaneous
  Country: US (occurrence: US)
  Receive Date: 20130304
  Receipt Date: 20130403
  Transmission Date: 20140414
  Serious: Yes (Hospitalization, Other)
  Sender: FDA-Public Use
  Company Number: PHEH2013US001092

PATIENT
  Age: 78 Year
  Sex: Female
  Weight: 70.53 kg

DRUGS (6)
  1. SANDOSTATIN LAR DEPOT [Suspect]
     Indication: NEUROENDOCRINE TUMOUR
     Dosage: 30 MG, EVERY 26 DAYS
     Route: 030
     Dates: start: 20120523
  2. COUMADINE [Suspect]
     Indication: DEEP VEIN THROMBOSIS
     Dosage: 10 MG, DAILY
     Route: 048
     Dates: end: 20121219
  3. AFINITOR [Concomitant]
     Indication: NEUROENDOCRINE TUMOUR
     Dosage: 10 MG, DAILY
     Route: 048
  4. OMEPRAZOLE [Concomitant]
     Dosage: 20 MG, DAILY
     Route: 048
  5. VITAMIN D3 [Concomitant]
     Indication: VITAMIN D DEFICIENCY
     Dosage: 1000 DF, DAILY
     Route: 048
  6. AMOXICILLIN\CLAVULANATE POTASSIUM [Concomitant]
     Dosage: 875/125UG, Q12H
     Route: 048

REACTIONS (6)
  - Coagulopathy [Recovered/Resolved]
  - Renal cyst haemorrhage [Recovered/Resolved]
  - Hypoprothrombinaemia [Recovered/Resolved]
  - Haematuria [Recovered/Resolved]
  - Malignant neoplasm progression [Unknown]
  - No therapeutic response [Unknown]
